FAERS Safety Report 24103165 (Version 3)
Quarter: 2024Q3

REPORT INFORMATION
  Report Type: Spontaneous
  Country: US (occurrence: US)
  Receive Date: 20240717
  Receipt Date: 20240823
  Transmission Date: 20241016
  Serious: No
  Sender: ROCHE
  Company Number: US-ROCHE-10000021128

PATIENT

DRUGS (1)
  1. NUTROPIN AQ [Suspect]
     Active Substance: SOMATROPIN
     Indication: Product used for unknown indication
     Dosage: NUTROPIN PREFILLED PEN 10 MG/2 ML
     Route: 058

REACTIONS (3)
  - Drug delivery system issue [Unknown]
  - No adverse event [Unknown]
  - Needle issue [Unknown]
